FAERS Safety Report 8610978-8 (Version None)
Quarter: 2012Q3

REPORT INFORMATION
  Report Type: 
  Country: None (occurrence: None)
  Receive Date: 20120808
  Receipt Date: 20120724
  Transmission Date: 20120928
  Serious: Yes (Hospitalization, Other)
  Sender: FDA-Public Use
  Company Number: CIP11002917

PATIENT
  Age: 75 Year
  Sex: Female

DRUGS (29)
  1. ACTONEL [Suspect]
     Indication: OSTEOPOROSIS
     Dosage: 35 MG ONCE WEEKLY, ORAL, 35 MG ONCE WEEKLY, ORAL
     Route: 048
     Dates: start: 20100401
  2. ACTONEL [Suspect]
     Indication: OSTEOPOROSIS
     Dosage: 35 MG ONCE WEEKLY, ORAL, 35 MG ONCE WEEKLY, ORAL
     Route: 048
     Dates: start: 20030101, end: 20080101
  3. FOSAMAX [Suspect]
     Indication: OSTEOPOROSIS
     Dosage: 70 MG UNKNOWN, ORAL, 10 MG DAILY, ORAL
     Route: 048
     Dates: start: 19990901, end: 20010301
  4. FOSAMAX [Suspect]
     Indication: OSTEOPOROSIS
     Dosage: 70 MG UNKNOWN, ORAL, 10 MG DAILY, ORAL
     Route: 048
     Dates: start: 20010401, end: 20030101
  5. OMACOR /06852001/ (DOCOSAHEXAENOIC ACID, EICOSAPENTAENOIC ACID) [Concomitant]
  6. ECONAZOLE (ECONAZOLE) [Concomitant]
  7. PRAVACHOL [Concomitant]
  8. CALCIUM CARBONATE [Concomitant]
  9. CRESTOR [Concomitant]
  10. ZETIA [Concomitant]
  11. HYDROCHLOROTHIAZIDE [Concomitant]
  12. PREDNISONE TAB [Concomitant]
  13. SULFAMETHOXAZOLE AND TRIMETHOPRIM [Concomitant]
  14. DIFLORASONE (DIFLORASONE) [Concomitant]
  15. MIACALCIN [Concomitant]
  16. AMOXICILLIN [Concomitant]
  17. PROMETHAZINE W/CODEINE /01129901/ (CODEINE PHOSPHATE, PROMETHAZINE HYD [Concomitant]
  18. CEPHALEXIN /00145501/ (CEFALEXIN) [Concomitant]
  19. NIASPAN [Concomitant]
  20. VALTREX [Concomitant]
  21. BETAMETHASONE [Concomitant]
  22. VITAMIN D [Concomitant]
  23. COENZYME Q10 [Concomitant]
  24. LOVAZA [Concomitant]
  25. SYNTHROID [Concomitant]
  26. MULTIVITAMIN /00097801/ (ASCORBIC ACID, CALCIUM PANTOTHENATE, ERGOCALC [Concomitant]
  27. CLOTRIMAZOLE W/BETAMETHASONE DIPROPIONAT (BETAMETHASONE DIPROPIONATE, [Concomitant]
  28. ACTONEL [Suspect]
     Indication: OSTEOPOROSIS
     Dosage: 150 MG ONCE MONTHLY, ORAL
     Route: 048
     Dates: start: 20081201
  29. AVELOX [Concomitant]

REACTIONS (14)
  - BONE DISORDER [None]
  - BURSITIS [None]
  - FRACTURE DISPLACEMENT [None]
  - LOW TURNOVER OSTEOPATHY [None]
  - OEDEMA PERIPHERAL [None]
  - RED BLOOD CELL SEDIMENTATION RATE INCREASED [None]
  - DEPRESSION [None]
  - FALL [None]
  - PAIN IN EXTREMITY [None]
  - OSTEOGENESIS IMPERFECTA [None]
  - FEMORAL NECK FRACTURE [None]
  - ARTHRALGIA [None]
  - BONE MARROW OEDEMA [None]
  - STRESS FRACTURE [None]
